FAERS Safety Report 24784446 (Version 1)
Quarter: 2024Q4

REPORT INFORMATION
  Report Type: Spontaneous
  Country: US (occurrence: US)
  Receive Date: 20241227
  Receipt Date: 20241227
  Transmission Date: 20250115
  Serious: Yes (Other)
  Sender: FERRING
  Company Number: US-FERRINGPH-2024FE07155

PATIENT

DRUGS (1)
  1. ADSTILADRIN [Suspect]
     Active Substance: NADOFARAGENE FIRADENOVEC-VNCG
     Indication: Bladder cancer
     Dosage: 75 ML, ONCE/SINGLE
     Route: 043
     Dates: start: 20240927, end: 20240927

REACTIONS (1)
  - Urinary cystectomy [Unknown]

NARRATIVE: CASE EVENT DATE: 20241211
